FAERS Safety Report 7701036-5 (Version None)
Quarter: 2011Q3

REPORT INFORMATION
  Report Type: 
  Country: None (occurrence: None)
  Receive Date: 20110822
  Receipt Date: 20110812
  Transmission Date: 20111222
  Serious: Yes (Hospitalization, Other)
  Sender: FDA-Public Use
  Company Number: US-BAYER-201016509NA

PATIENT
  Age: 36 Year
  Sex: Female
  Weight: 54.422 kg

DRUGS (5)
  1. MEVACOR [Concomitant]
  2. YAZ [Suspect]
     Indication: PRODUCT USED FOR UNKNOWN INDICATION
     Route: 048
  3. ASCORBIC ACID [Concomitant]
  4. LEXAPRO [Concomitant]
  5. MORPHINE [Concomitant]
     Indication: CHEST PAIN

REACTIONS (1)
  - MYOCARDIAL INFARCTION [None]
